FAERS Safety Report 6376744-1 (Version None)
Quarter: 2009Q3

REPORT INFORMATION
  Report Type: 
  Country: None (occurrence: None)
  Receive Date: 20090924
  Receipt Date: 20090924
  Transmission Date: 20100115
  Serious: Yes (Disabling)
  Sender: FDA-Public Use
  Company Number: None

PATIENT
  Sex: Female
  Weight: 54.4316 kg

DRUGS (1)
  1. BONIVA [Suspect]
     Indication: OSTEOPENIA
     Dosage: ONCE PER MONTH ORAL
     Route: 048
     Dates: start: 20080901, end: 20090501

REACTIONS (3)
  - BONE DISORDER [None]
  - MOBILITY DECREASED [None]
  - PAIN [None]
